FAERS Safety Report 6875945-3 (Version None)
Quarter: 2010Q3

REPORT INFORMATION
  Report Type: 
  Country: None (occurrence: None)
  Receive Date: 20100727
  Receipt Date: 20100722
  Transmission Date: 20110219
  Serious: Yes (Hospitalization)
  Sender: FDA-Public Use
  Company Number: B0666045A

PATIENT
  Age: 22 Year
  Sex: Female

DRUGS (2)
  1. PREDNISOLONE [Suspect]
  2. ERYTHROMYCIN [Suspect]

REACTIONS (8)
  - DRUG EXPOSURE DURING PREGNANCY [None]
  - HYPERTENSION [None]
  - KETOACIDOSIS [None]
  - KUSSMAUL RESPIRATION [None]
  - LIVE BIRTH [None]
  - MALAISE [None]
  - SINUS TACHYCARDIA [None]
  - VOMITING [None]
